FAERS Safety Report 8912972 (Version 4)
Quarter: 2012Q4

REPORT INFORMATION
  Report Type: 
  Country: GB (occurrence: GB)
  Receive Date: 20121116
  Receipt Date: 20121214
  Transmission Date: 20130627
  Serious: Yes (Other)
  Sender: FDA-Public Use
  Company Number: GB-JNJFOC-20121106635

PATIENT
  Age: 30 Year
  Sex: Female

DRUGS (2)
  1. ZIRTEK [Suspect]
     Route: 048
  2. ZIRTEK [Suspect]
     Indication: HYPERSENSITIVITY
     Route: 048
     Dates: start: 20121029, end: 20121029

REACTIONS (2)
  - Heart rate increased [Recovered/Resolved]
  - Dizziness [Unknown]
